FAERS Safety Report 5243943-1 (Version None)
Quarter: 2007Q1

REPORT INFORMATION
  Report Type: 
  Country: None (occurrence: None)
  Receive Date: 20070222
  Receipt Date: 20070215
  Transmission Date: 20070707
  Serious: Yes (Hospitalization)
  Sender: FDA-Public Use
  Company Number: DK-AVENTIS-200711334GDDC

PATIENT
  Age: 63 Year
  Sex: Male

DRUGS (1)
  1. DESMOPRESSIN [Suspect]

REACTIONS (3)
  - DRUG ABUSER [None]
  - HYPONATRAEMIA [None]
  - OVERDOSE [None]
